FAERS Safety Report 24297549 (Version 3)
Quarter: 2025Q1

REPORT INFORMATION
  Report Type: Report from Study
  Country: BR (occurrence: BR)
  Receive Date: 20240909
  Receipt Date: 20250115
  Transmission Date: 20250409
  Serious: Yes (Hospitalization)
  Sender: AMGEN
  Company Number: BR-AMGEN-BRASL2024175320

PATIENT
  Age: 56 Year
  Sex: Female

DRUGS (1)
  1. VECTIBIX [Suspect]
     Active Substance: PANITUMUMAB
     Indication: Colorectal cancer metastatic
     Route: 042
     Dates: start: 20240813

REACTIONS (13)
  - Dermatitis allergic [Not Recovered/Not Resolved]
  - Skin burning sensation [Recovering/Resolving]
  - Skin haemorrhage [Recovering/Resolving]
  - Acne pustular [Not Recovered/Not Resolved]
  - Feeling hot [Not Recovered/Not Resolved]
  - Weight increased [Not Recovered/Not Resolved]
  - Pain of skin [Recovering/Resolving]
  - Diarrhoea [Not Recovered/Not Resolved]
  - Vomiting [Not Recovered/Not Resolved]
  - Asthenia [Recovering/Resolving]
  - Pruritus [Recovering/Resolving]
  - Dry skin [Not Recovered/Not Resolved]
  - Nausea [Not Recovered/Not Resolved]

NARRATIVE: CASE EVENT DATE: 20240101
